FAERS Safety Report 5060170-1 (Version None)
Quarter: 2006Q3

REPORT INFORMATION
  Report Type: 
  Country: None (occurrence: None)
  Receive Date: 20060719
  Receipt Date: 20060707
  Transmission Date: 20061208
  Serious: Yes (Death)
  Sender: FDA-Public Use
  Company Number: A-CH2006-12476

PATIENT
  Age: 75 Year
  Sex: Female
  Weight: 60 kg

DRUGS (12)
  1. TRACLEER [Suspect]
     Indication: PULMONARY HYPERTENSION
     Dosage: 62.5 MG, BID, ORAL
     Route: 048
     Dates: start: 20060501, end: 20060501
  2. ASPIRIN [Concomitant]
  3. FUROSEMIDE [Concomitant]
  4. METFORMIN [Concomitant]
  5. AMLODIPINE [Concomitant]
  6. FOSINOPRIL SODIUM [Concomitant]
  7. ATENOLOL [Concomitant]
  8. TOLBUTAMIDE [Concomitant]
  9. SIMVASTATIN [Concomitant]
  10. TOBRADEX [Concomitant]
  11. IPRATROPIUM BROMIDE [Concomitant]
  12. AMIODARONE (AMIODARONE) [Concomitant]

REACTIONS (2)
  - ASPARTATE AMINOTRANSFERASE INCREASED [None]
  - SUDDEN DEATH [None]
